FAERS Safety Report 5110660-8 (Version None)
Quarter: 2006Q3

REPORT INFORMATION
  Report Type: 
  Country: None (occurrence: None)
  Receive Date: 20060919
  Receipt Date: 20060907
  Transmission Date: 20061208
  Serious: Yes (Other)
  Sender: FDA-Public Use
  Company Number: S06-USA-03193-01

PATIENT
  Age: 57 Year
  Sex: Male

DRUGS (2)
  1. THYROID TAB [Suspect]
     Indication: HYPOTHYROIDISM
     Dosage: 180 MG QD PO
     Route: 048
     Dates: start: 20060401, end: 20060904
  2. ROCALTROL [Suspect]
     Dates: end: 20060801

REACTIONS (6)
  - ALANINE AMINOTRANSFERASE INCREASED [None]
  - ASPARTATE AMINOTRANSFERASE INCREASED [None]
  - EAR PRURITUS [None]
  - MYALGIA [None]
  - RASH [None]
  - VIRAL LOAD INCREASED [None]
